FAERS Safety Report 7344608-2 (Version None)
Quarter: 2011Q1

REPORT INFORMATION
  Report Type: 
  Country: None (occurrence: None)
  Receive Date: 20110310
  Receipt Date: 20110302
  Transmission Date: 20110831
  Serious: Yes (Hospitalization, Other)
  Sender: FDA-Public Use
  Company Number: AR-US-EMD SERONO, INC.-7042429

PATIENT
  Sex: Female

DRUGS (1)
  1. SEROPHENE [Suspect]
     Indication: PRODUCT USED FOR UNKNOWN INDICATION

REACTIONS (5)
  - HYPOPHYSITIS [None]
  - PITUITARY TUMOUR BENIGN [None]
  - VISUAL IMPAIRMENT [None]
  - VOMITING [None]
  - HEADACHE [None]
